FAERS Safety Report 4560323-2 (Version None)
Quarter: 2005Q1

REPORT INFORMATION
  Report Type: 
  Country: None (occurrence: None)
  Receive Date: 20050125
  Receipt Date: 20050117
  Transmission Date: 20050727
  Serious: Yes (Other)
  Sender: FDA-Public Use
  Company Number: PHFR2005GB00604

PATIENT
  Age: 52 Year
  Sex: Female

DRUGS (1)
  1. NATEGLINIDE [Suspect]
     Indication: DIABETES MELLITUS
     Route: 065

REACTIONS (4)
  - ARTHRALGIA [None]
  - DIZZINESS [None]
  - GLYCOSYLATED HAEMOGLOBIN INCREASED [None]
  - PRURITUS [None]
